FAERS Safety Report 8265219-0 (Version None)
Quarter: 2012Q2

REPORT INFORMATION
  Report Type: 
  Country: None (occurrence: None)
  Receive Date: 20120406
  Receipt Date: 20120327
  Transmission Date: 20120825
  Serious: Yes (Other)
  Sender: FDA-Public Use
  Company Number: AR-AMGEN-ARGSP2012020670

PATIENT
  Age: 57 Year
  Sex: Female

DRUGS (5)
  1. LEFLUNOMIDE [Concomitant]
     Dosage: UNK
  2. METFORMINE MERCK [Concomitant]
     Dosage: UNK
  3. METHOTREXATE [Concomitant]
     Dosage: UNK
  4. ENBREL [Suspect]
     Indication: RHEUMATOID ARTHRITIS
     Dosage: 50 MG, WEEKLY
     Route: 058
     Dates: start: 20051104, end: 20120110
  5. CORTICOSTEROIDS [Concomitant]
     Dosage: UNK

REACTIONS (1)
  - RHEUMATOID ARTHRITIS [None]
